FAERS Safety Report 12330041 (Version 1)
Quarter: 2016Q2

REPORT INFORMATION
  Report Type: Spontaneous
  Country: KR (occurrence: US)
  Receive Date: 20160504
  Receipt Date: 20160504
  Transmission Date: 20160815
  Serious: No
  Sender: FDA-Public Use
  Company Number: US-FRESENIUS MEDICAL CARE NORTH AMERICA-1051387

PATIENT
  Age: 61 Year
  Sex: Male

DRUGS (2)
  1. PHOSLO [Suspect]
     Active Substance: CALCIUM ACETATE
     Indication: END STAGE RENAL DISEASE
     Route: 048
  2. ALFACALCIDOL [Concomitant]
     Active Substance: ALFACALCIDOL

REACTIONS (1)
  - Calcinosis [Unknown]
